FAERS Safety Report 10485515 (Version 2)
Quarter: 2014Q4

REPORT INFORMATION
  Report Type: Report from Study
  Country: BR (occurrence: BR)
  Receive Date: 20140930
  Receipt Date: 20141110
  Transmission Date: 20150528
  Serious: Yes (Other)
  Sender: FDA-Public Use
  Company Number: PHHY2014BR127985

PATIENT
  Sex: Male
  Weight: 80 kg

DRUGS (10)
  1. CLOPIDOGREL [Concomitant]
     Active Substance: CLOPIDOGREL BISULFATE
     Indication: CARDIAC DISORDER
     Dosage: 1 DF, QD
     Route: 065
  2. ANCORON [Concomitant]
     Active Substance: AMIODARONE HYDROCHLORIDE
     Indication: PRODUCT USED FOR UNKNOWN INDICATION
     Dosage: QD (IN THE MORNING)
     Route: 065
  3. EXELON PATCH [Suspect]
     Active Substance: RIVASTIGMINE
     Dosage: 9.5 MG, DAILY (ONE ADHESIVE, 18MG/10CM2)
     Route: 062
  4. SIMVASTATIN. [Concomitant]
     Active Substance: SIMVASTATIN
     Indication: PRODUCT USED FOR UNKNOWN INDICATION
     Dosage: 1 DF, QHS
     Route: 065
  5. EXELON PATCH [Suspect]
     Active Substance: RIVASTIGMINE
     Indication: MEMORY IMPAIRMENT
     Dosage: 9.5 MG, DAILY (ONE ADHESIVE, 18MG/10CM2)
     Route: 062
  6. CLOPIDOGREL [Concomitant]
     Active Substance: CLOPIDOGREL BISULFATE
     Indication: ANGINA PECTORIS
  7. APRESOLINE HYDROCHLORIDE [Concomitant]
     Active Substance: HYDRALAZINE HYDROCHLORIDE
     Indication: PRODUCT USED FOR UNKNOWN INDICATION
     Dosage: BID (IN THE MORNING AND AT NIGHT)
     Route: 065
  8. EXELON PATCH [Suspect]
     Active Substance: RIVASTIGMINE
     Dosage: 9.5 MG, DAILY (ONE ADHESIVE, 18MG/10CM2)
     Route: 062
  9. ABLOK [Concomitant]
     Active Substance: ATENOLOL
     Indication: LIMB DISCOMFORT
     Dosage: 1 DF, BID (ONE IN THE MORNING AND ONE AT NIGHT)
     Route: 065
  10. HIGROTON [Concomitant]
     Active Substance: CHLORTHALIDONE
     Indication: PRODUCT USED FOR UNKNOWN INDICATION
     Route: 065

REACTIONS (9)
  - Hypersensitivity [Recovering/Resolving]
  - Memory impairment [Recovering/Resolving]
  - Diabetes mellitus [Recovering/Resolving]
  - Cardiac disorder [Recovering/Resolving]
  - Agitation [Recovering/Resolving]
  - Wound [Recovering/Resolving]
  - Wound haemorrhage [Recovering/Resolving]
  - Pruritus [Recovering/Resolving]
  - Feeling hot [Recovering/Resolving]
